FAERS Safety Report 6522521-8 (Version None)
Quarter: 2009Q4

REPORT INFORMATION
  Report Type: 
  Country: None (occurrence: None)
  Receive Date: 20091229
  Receipt Date: 20091229
  Transmission Date: 20100525
  Serious: Yes (Other)
  Sender: FDA-Public Use
  Company Number: None

PATIENT
  Sex: Male
  Weight: 98.8842 kg

DRUGS (2)
  1. PEGASYS [Suspect]
     Indication: HEPATITIS C
     Dosage: 180 MCG PREFILLED SYRINGE WEEKLY SQ
     Route: 058
     Dates: start: 20091214
  2. RIBAVIRIN [Suspect]
     Indication: HEPATITIS C
     Dosage: 1200 MG DAILY PO
     Route: 048
     Dates: start: 20091214

REACTIONS (6)
  - DYSPNOEA [None]
  - FLUID RETENTION [None]
  - INCREASED UPPER AIRWAY SECRETION [None]
  - LUNG INFECTION [None]
  - SKIN ULCER [None]
  - VOMITING [None]
